FAERS Safety Report 5053120-5 (Version None)
Quarter: 2006Q3

REPORT INFORMATION
  Report Type: 
  Country: None (occurrence: None)
  Receive Date: 20060717
  Receipt Date: 20060711
  Transmission Date: 20061208
  Serious: Yes (Hospitalization)
  Sender: FDA-Public Use
  Company Number: FR-SANOFI-SYNTHELABO-F01200601640

PATIENT
  Sex: Male

DRUGS (11)
  1. AMIKACIN [Concomitant]
     Indication: INFECTION
     Route: 065
     Dates: start: 20060621
  2. OXACILLIN [Concomitant]
     Indication: INFECTION
     Route: 065
     Dates: start: 20060620
  3. NADROPARIN [Suspect]
     Route: 065
     Dates: start: 20060607
  4. TRIMEBUTINE [Concomitant]
     Indication: PAIN
     Route: 065
     Dates: start: 20060607
  5. RAMIPRIL [Concomitant]
     Indication: HYPERTENSION
     Route: 065
  6. VERAPAMIL [Concomitant]
     Indication: HYPERTENSION
     Route: 065
     Dates: start: 20060524
  7. GEMZAR [Suspect]
     Route: 042
     Dates: start: 20060622, end: 20060622
  8. PROPRANOLOL [Concomitant]
     Indication: HYPERTENSION
     Route: 065
  9. ERBITUX [Suspect]
     Route: 042
     Dates: start: 20060621, end: 20060621
  10. OXALIPLATIN [Suspect]
     Indication: COLORECTAL CANCER
     Route: 042
     Dates: start: 20060622, end: 20060622
  11. FUROSEMIDE [Concomitant]
     Indication: HYPERTENSION
     Route: 065

REACTIONS (1)
  - VARICES OESOPHAGEAL [None]
